FAERS Safety Report 25595890 (Version 1)
Quarter: 2025Q3

REPORT INFORMATION
  Report Type: Spontaneous
  Country: CH (occurrence: CH)
  Receive Date: 20250723
  Receipt Date: 20250723
  Transmission Date: 20251020
  Serious: Yes (Hospitalization, Other)
  Sender: LEADING PHARMA
  Company Number: CH-LEADINGPHARMA-CH-2025LEALIT00123

PATIENT
  Age: 20 Year
  Sex: Male
  Weight: 66 kg

DRUGS (15)
  1. LORAZEPAM [Suspect]
     Active Substance: LORAZEPAM
     Indication: Autism spectrum disorder
     Route: 065
  2. LORAZEPAM [Suspect]
     Active Substance: LORAZEPAM
     Indication: Abnormal behaviour
  3. RISPERIDONE [Suspect]
     Active Substance: RISPERIDONE
     Indication: Antipsychotic therapy
     Route: 065
  4. CLOZAPINE [Suspect]
     Active Substance: CLOZAPINE
     Indication: Abnormal behaviour
     Route: 065
  5. CLOZAPINE [Suspect]
     Active Substance: CLOZAPINE
     Indication: Psychotic disorder
     Route: 065
  6. GUANFACINE [Suspect]
     Active Substance: GUANFACINE
     Indication: Autism spectrum disorder
     Route: 065
  7. GUANFACINE [Suspect]
     Active Substance: GUANFACINE
     Indication: Abnormal behaviour
  8. LEVOMEPROMAZINE [Suspect]
     Active Substance: LEVOMEPROMAZINE
     Indication: Autism spectrum disorder
     Route: 065
  9. LEVOMEPROMAZINE [Suspect]
     Active Substance: LEVOMEPROMAZINE
     Indication: Abnormal behaviour
  10. DIPHENHYDRAMINE [Suspect]
     Active Substance: DIPHENHYDRAMINE
     Indication: Autism spectrum disorder
     Route: 065
  11. DIPHENHYDRAMINE [Suspect]
     Active Substance: DIPHENHYDRAMINE
     Indication: Adrenocortical insufficiency acute
  12. BIPERIDEN [Suspect]
     Active Substance: BIPERIDEN
     Indication: Autism spectrum disorder
     Route: 065
  13. BIPERIDEN [Suspect]
     Active Substance: BIPERIDEN
     Indication: Abnormal behaviour
  14. DOXYLAMINE [Suspect]
     Active Substance: DOXYLAMINE
     Indication: Autism spectrum disorder
     Route: 065
  15. DOXYLAMINE [Suspect]
     Active Substance: DOXYLAMINE
     Indication: Abnormal behaviour

REACTIONS (2)
  - Urinary retention [Recovered/Resolved]
  - Product use in unapproved indication [Unknown]
